FAERS Safety Report 8566405-2 (Version None)
Quarter: 2012Q3

REPORT INFORMATION
  Report Type: 
  Country: None (occurrence: None)
  Receive Date: 20120803
  Receipt Date: 20111130
  Transmission Date: 20120928
  Serious: No
  Sender: FDA-Public Use
  Company Number: US-ABBOTT-11P-163-0874325-00

PATIENT
  Sex: Female
  Weight: 74.91 kg

DRUGS (4)
  1. NIASPAN [Suspect]
     Indication: CAROTID ARTERY OCCLUSION
     Dosage: AT BEDTIME
     Dates: start: 20111108
  2. UNKNOWN CHOLESTEROL MEDICATION [Concomitant]
     Indication: PRODUCT USED FOR UNKNOWN INDICATION
  3. ASPIRIN [Concomitant]
     Indication: PRODUCT USED FOR UNKNOWN INDICATION
  4. PLAVIX [Concomitant]
     Indication: PRODUCT USED FOR UNKNOWN INDICATION

REACTIONS (5)
  - COLD SWEAT [None]
  - VOMITING [None]
  - NAUSEA [None]
  - SKIN BURNING SENSATION [None]
  - FLUSHING [None]
